FAERS Safety Report 25545203 (Version 1)
Quarter: 2025Q3

REPORT INFORMATION
  Report Type: Spontaneous
  Country: SA (occurrence: SA)
  Receive Date: 20250711
  Receipt Date: 20250711
  Transmission Date: 20251021
  Serious: Yes (Other)
  Sender: BRISTOL-MYERS SQUIBB COMPANY
  Company Number: SA-BRISTOL-MYERS SQUIBB COMPANY-2025-094368

PATIENT
  Age: 36 Year
  Sex: Female

DRUGS (2)
  1. LUSPATERCEPT [Suspect]
     Active Substance: LUSPATERCEPT
     Indication: Thalassaemia
  2. LUSPATERCEPT [Suspect]
     Active Substance: LUSPATERCEPT

REACTIONS (2)
  - Extramedullary haemopoiesis [Unknown]
  - Cauda equina syndrome [Unknown]
